FAERS Safety Report 19611635 (Version 1)
Quarter: 2021Q3

REPORT INFORMATION
  Report Type: Spontaneous
  Country: US (occurrence: US)
  Receive Date: 20210727
  Receipt Date: 20210727
  Transmission Date: 20211014
  Serious: Yes (Other)
  Sender: FDA-Public Use
  Company Number: US-APOTEX-2021AP023992

PATIENT

DRUGS (1)
  1. CYCLOSPORINE. [Suspect]
     Active Substance: CYCLOSPORINE
     Indication: CYSTITIS INTERSTITIAL
     Dosage: TWICE A DAY IN EQUAL DOSES
     Route: 065

REACTIONS (2)
  - Cutaneous lymphoma [Unknown]
  - Off label use [Unknown]
